FAERS Safety Report 6934110-1 (Version None)
Quarter: 2010Q3

REPORT INFORMATION
  Report Type: 
  Country: None (occurrence: None)
  Receive Date: 20100820
  Receipt Date: 20100812
  Transmission Date: 20110219
  Serious: Yes (Life-Threatening, Disabling, Other)
  Sender: FDA-Public Use
  Company Number: US-MERCK-1008USA00494

PATIENT
  Age: 37 Year
  Sex: Female

DRUGS (3)
  1. ZOCOR [Suspect]
     Indication: HYPERCHOLESTEROLAEMIA
     Route: 048
     Dates: start: 20090101, end: 20100725
  2. LOESTRIN 1.5/30 [Suspect]
     Route: 065
     Dates: start: 20100719, end: 20100728
  3. ZOCOR [Suspect]
     Route: 048
     Dates: start: 20090326

REACTIONS (1)
  - DEEP VEIN THROMBOSIS [None]
